FAERS Safety Report 5220919-1 (Version None)
Quarter: 2007Q1

REPORT INFORMATION
  Report Type: 
  Country: None (occurrence: None)
  Receive Date: 20070125
  Receipt Date: 20070125
  Transmission Date: 20070707
  Serious: Yes (Hospitalization)
  Sender: FDA-Public Use
  Company Number: None

PATIENT
  Sex: Male
  Weight: 93.441 kg

DRUGS (6)
  1. INSULIN [Suspect]
     Indication: DIABETES MELLITUS
     Dosage: PRIOR TO ADMISSION
  2. PLAVIX [Concomitant]
  3. COREG [Concomitant]
  4. ALTACE [Concomitant]
  5. LIPITOR [Concomitant]
  6. ASPIRIN [Concomitant]

REACTIONS (5)
  - CHILLS [None]
  - EXCORIATION [None]
  - HYPOGLYCAEMIA [None]
  - SYNCOPE [None]
  - TREMOR [None]
